FAERS Safety Report 20160162 (Version 1)
Quarter: 2021Q4

REPORT INFORMATION
  Report Type: Spontaneous
  Country: US (occurrence: US)
  Receive Date: 20211208
  Receipt Date: 20211208
  Transmission Date: 20220303
  Serious: No
  Sender: FDA-Public Use
  Company Number: US-SA-SAC20211203000078

PATIENT
  Age: 62 Year
  Sex: Female

DRUGS (16)
  1. DUPIXENT [Suspect]
     Active Substance: DUPILUMAB
     Indication: Dermatitis atopic
     Dosage: 600 MG, 1X
     Route: 058
     Dates: start: 20211117, end: 20211117
  2. DUPIXENT [Suspect]
     Active Substance: DUPILUMAB
     Dosage: 300 MG, QOW
     Route: 058
     Dates: start: 202111
  3. HYDROXYZINE HYDROCHLORIDE [Concomitant]
     Active Substance: HYDROXYZINE HYDROCHLORIDE
  4. LORAZEPAM [Concomitant]
     Active Substance: LORAZEPAM
  5. CALCIUM\VITAMIN D [Concomitant]
     Active Substance: CALCIUM\VITAMIN D
  6. ZYRTEC [Concomitant]
     Active Substance: CETIRIZINE HYDROCHLORIDE
  7. SIMETHICONE (DIMETHICONE) [Concomitant]
     Active Substance: DIMETHICONE
  8. FIBER [Concomitant]
     Active Substance: PSYLLIUM HUSK
  9. Gold Bond Ultimate Healing Lotion [Concomitant]
  10. LIDOCAINE [Concomitant]
     Active Substance: LIDOCAINE
  11. BENADRYL ITCH STOPPING CREAM [Concomitant]
  12. PARAFFIN [Concomitant]
     Active Substance: PARAFFIN
  13. GOLD BOND ULTIMATE ECZEMA RELIEF [Concomitant]
     Active Substance: OATMEAL
  14. TRIAMCINOLONE ACETONIDE [Concomitant]
     Active Substance: TRIAMCINOLONE ACETONIDE
  15. XANAX [Concomitant]
     Active Substance: ALPRAZOLAM
     Dosage: UNK
  16. SUDAFED [Concomitant]
     Active Substance: PSEUDOEPHEDRINE HYDROCHLORIDE

REACTIONS (4)
  - Skin haemorrhage [Unknown]
  - Skin fissures [Unknown]
  - Pruritus [Unknown]
  - Skin discolouration [Unknown]

NARRATIVE: CASE EVENT DATE: 20211101
